FAERS Safety Report 19626126 (Version 2)
Quarter: 2021Q3

REPORT INFORMATION
  Report Type: Report from Study
  Country: FR (occurrence: FR)
  Receive Date: 20210728
  Receipt Date: 20210804
  Transmission Date: 20211014
  Serious: Yes (Hospitalization)
  Sender: FDA-Public Use
  Company Number: FR-EXELIXIS-XL18421039311

PATIENT
  Age: 67 Year
  Sex: Male
  Weight: 78 kg

DRUGS (10)
  1. UVEDOSE [Concomitant]
     Active Substance: CHOLECALCIFEROL
  2. XL184 [Suspect]
     Active Substance: CABOZANTINIB
     Indication: RENAL CELL CARCINOMA
     Dosage: 40 MG, QD
     Route: 048
     Dates: start: 20210319, end: 20210408
  3. IPILIMUMAB [Suspect]
     Active Substance: IPILIMUMAB
     Indication: RENAL CELL CARCINOMA
     Dosage: 1 MG/KG, Q3WEEKS, 4 DOSES
     Route: 042
     Dates: start: 20210319
  4. NIVOLUMAB [Suspect]
     Active Substance: NIVOLUMAB
     Indication: RENAL CELL CARCINOMA
     Dosage: 3 MG/KG, Q3WEEKS, 4 DOSES
     Route: 042
     Dates: start: 20210319
  5. COVERSYL [Concomitant]
     Active Substance: PERINDOPRIL
     Dosage: 5 MG
  6. ATORVASTATINE [Concomitant]
     Active Substance: ATORVASTATIN
     Dosage: 20 MG
  7. FUROSEMIDE. [Concomitant]
     Active Substance: FUROSEMIDE
     Dosage: 20 MG
  8. AMIODARONE [Concomitant]
     Active Substance: AMIODARONE
     Dosage: 200 UNK
  9. MONTELUKAST ACTAVIS [Concomitant]
     Active Substance: MONTELUKAST SODIUM
  10. BISOPROLOL ACTAVIS [Concomitant]
     Active Substance: BISOPROLOL
     Dosage: 2.5 MG

REACTIONS (1)
  - General physical health deterioration [Recovered/Resolved]

NARRATIVE: CASE EVENT DATE: 202104
